FAERS Safety Report 5479034-4 (Version None)
Quarter: 2007Q4

REPORT INFORMATION
  Report Type: 
  Country: None (occurrence: None)
  Receive Date: 20071006
  Receipt Date: 20070926
  Transmission Date: 20080405
  Serious: Yes (Disabling, Other)
  Sender: FDA-Public Use
  Company Number: US-PFIZER INC-2007080963

PATIENT
  Sex: Male

DRUGS (1)
  1. LIPITOR [Suspect]

REACTIONS (6)
  - ABASIA [None]
  - DISABILITY [None]
  - ERECTILE DYSFUNCTION [None]
  - LIVER DISORDER [None]
  - PAIN [None]
  - RENAL IMPAIRMENT [None]
